FAERS Safety Report 22101086 (Version 1)
Quarter: 2023Q1

REPORT INFORMATION
  Report Type: Spontaneous
  Country: US (occurrence: US)
  Receive Date: 20230316
  Receipt Date: 20230316
  Transmission Date: 20230418
  Serious: No
  Sender: FDA-Public Use
  Company Number: US-Hikma Pharmaceuticals USA Inc.-US-H14001-22-01922

PATIENT
  Age: 73 Year
  Sex: Female

DRUGS (3)
  1. FLUTICASONE [Suspect]
     Active Substance: FLUTICASONE
     Indication: Rhinorrhoea
     Dosage: ONE TO TWO SPRAYS AS NEEDED INTO EACH NOSTRIL
     Route: 045
     Dates: start: 20220721, end: 20220721
  2. FLUTICASONE [Suspect]
     Active Substance: FLUTICASONE
     Indication: Nasal congestion
  3. UNSPECIFIED INGREDIENT [Concomitant]
     Active Substance: UNSPECIFIED INGREDIENT
     Indication: Ear infection
     Dosage: UNKNOWN
     Route: 065

REACTIONS (5)
  - Retching [Unknown]
  - Nausea [Unknown]
  - Product use complaint [Unknown]
  - Product dose omission issue [Unknown]
  - Off label use [Unknown]

NARRATIVE: CASE EVENT DATE: 20220721
